FAERS Safety Report 5678069-6 (Version None)
Quarter: 2008Q1

REPORT INFORMATION
  Report Type: 
  Country: None (occurrence: None)
  Receive Date: 20080324
  Receipt Date: 20080324
  Transmission Date: 20080703
  Serious: Yes (Other)
  Sender: FDA-Public Use
  Company Number: None

PATIENT
  Age: 80 Year
  Sex: Male
  Weight: 80.2867 kg

DRUGS (1)
  1. CIPROFLOXACIN [Suspect]
     Indication: LOCALISED INFECTION
     Dosage: 500 MG TWICE DAILY PO
     Route: 048
     Dates: start: 20080221, end: 20080223

REACTIONS (4)
  - BODY TEMPERATURE INCREASED [None]
  - HEART RATE INCREASED [None]
  - MUSCULOSKELETAL STIFFNESS [None]
  - RASH [None]
